FAERS Safety Report 15575148 (Version 1)
Quarter: 2018Q4

REPORT INFORMATION
  Report Type: Spontaneous
  Country: US (occurrence: US)
  Receive Date: 20181101
  Receipt Date: 20181101
  Transmission Date: 20190205
  Serious: Yes (Other)
  Sender: FDA-Public Use
  Company Number: US-ENDO PHARMACEUTICALS INC-2018-042689

PATIENT
  Age: 27 Year
  Sex: Male
  Weight: 95.24 kg

DRUGS (1)
  1. PERCOCET [Suspect]
     Active Substance: ACETAMINOPHEN\OXYCODONE HYDROCHLORIDE
     Indication: PRODUCT USED FOR UNKNOWN INDICATION
     Dosage: UNK UNKNOWN, UNKNOWN
     Route: 065

REACTIONS (4)
  - Respiration abnormal [Unknown]
  - Unresponsive to stimuli [Recovered/Resolved]
  - Overdose [Unknown]
  - Miosis [Unknown]

NARRATIVE: CASE EVENT DATE: 20171224
